FAERS Safety Report 6725622-4 (Version None)
Quarter: 2010Q2

REPORT INFORMATION
  Report Type: 
  Country: None (occurrence: None)
  Receive Date: 20100514
  Receipt Date: 20100503
  Transmission Date: 20101027
  Serious: Yes (Hospitalization)
  Sender: FDA-Public Use
  Company Number: BR-ROCHE-700816

PATIENT
  Sex: Female

DRUGS (3)
  1. XENICAL [Suspect]
     Indication: WEIGHT CONTROL
     Dosage: OTHER INDICATION: FOR TREATMENT OF FAT ACCUMULATION.
     Route: 065
  2. CORTISONE [Suspect]
     Indication: DRUG USE FOR UNKNOWN INDICATION
     Route: 065
  3. NEXIUM [Concomitant]
     Indication: ULCER

REACTIONS (2)
  - ACCIDENT [None]
  - FAT TISSUE INCREASED [None]
